FAERS Safety Report 24584088 (Version 1)
Quarter: 2024Q4

REPORT INFORMATION
  Report Type: Spontaneous
  Country: PL (occurrence: PL)
  Receive Date: 20241106
  Receipt Date: 20241106
  Transmission Date: 20250115
  Serious: Yes (Death, Other)
  Sender: ALEXION PHARMACEUTICALS
  Company Number: PL-AstraZeneca-CH-00714186A

PATIENT

DRUGS (4)
  1. ONDEXXYA [Suspect]
     Active Substance: ANDEXANET ALFA
     Route: 065
  2. ONDEXXYA [Suspect]
     Active Substance: ANDEXANET ALFA
  3. ONDEXXYA [Suspect]
     Active Substance: ANDEXANET ALFA
     Route: 065
  4. ONDEXXYA [Suspect]
     Active Substance: ANDEXANET ALFA

REACTIONS (1)
  - Death [Fatal]
